FAERS Safety Report 7047295-6 (Version None)
Quarter: 2010Q4

REPORT INFORMATION
  Report Type: 
  Country: None (occurrence: None)
  Receive Date: 20101015
  Receipt Date: 20101001
  Transmission Date: 20110411
  Serious: Yes (Other)
  Sender: FDA-Public Use
  Company Number: PHHY2010LB65727

PATIENT
  Age: 21 Year
  Sex: Male

DRUGS (2)
  1. DEFEROXAMINE MESYLATE [Suspect]
     Dosage: 56 MG/KG/D, FIVE DAYS A WEEK
     Route: 058
  2. RED BLOOD CELLS [Concomitant]
     Dosage: 08-10 UNIT

REACTIONS (4)
  - INJECTION SITE PAIN [None]
  - INSOMNIA [None]
  - SOCIAL AVOIDANT BEHAVIOUR [None]
  - TREATMENT NONCOMPLIANCE [None]
